FAERS Safety Report 4953187-6 (Version None)
Quarter: 2006Q1

REPORT INFORMATION
  Report Type: 
  Country: None (occurrence: None)
  Receive Date: 20060324
  Receipt Date: 20060320
  Transmission Date: 20060701
  Serious: Yes (Other)
  Sender: FDA-Public Use
  Company Number: US-MERCK-0603USA03519

PATIENT
  Age: 41 Year
  Sex: Female
  Weight: 72 kg

DRUGS (5)
  1. VIOXX [Suspect]
     Route: 048
     Dates: start: 20021007, end: 20030101
  2. DOXEPIN HYDROCHLORIDE [Concomitant]
     Route: 065
  3. FLEXERIL [Concomitant]
     Route: 048
  4. PAXIL [Concomitant]
     Route: 065
  5. TRAMADOL HYDROCHLORIDE [Concomitant]
     Route: 065

REACTIONS (5)
  - CHEST PAIN [None]
  - DEPRESSION [None]
  - HEADACHE [None]
  - MYOCARDIAL INFARCTION [None]
  - POST-TRAUMATIC STRESS DISORDER [None]
